FAERS Safety Report 5796651-2 (Version None)
Quarter: 2008Q2

REPORT INFORMATION
  Report Type: 
  Country: None (occurrence: None)
  Receive Date: 20080630
  Receipt Date: 20080630
  Transmission Date: 20081010
  Serious: Yes (Hospitalization)
  Sender: FDA-Public Use
  Company Number: None

PATIENT
  Age: 67 Year
  Sex: Male
  Weight: 79.83 kg

DRUGS (1)
  1. LISINOPRIL AND HYDROCHLOROTHIAZIDE [Suspect]
     Indication: HYPERTENSION
     Dosage: ONE TAB EVERY DAY PO
     Route: 048
     Dates: start: 20071113

REACTIONS (4)
  - ASTHENIA [None]
  - DYSPNOEA EXERTIONAL [None]
  - HYPOTENSION [None]
  - RENAL FAILURE ACUTE [None]
